FAERS Safety Report 6655315-3 (Version None)
Quarter: 2010Q1

REPORT INFORMATION
  Report Type: 
  Country: None (occurrence: None)
  Receive Date: 20100329
  Receipt Date: 20100323
  Transmission Date: 20100710
  Serious: Yes (Death)
  Sender: FDA-Public Use
  Company Number: NL-SANOFI-AVENTIS-2010SA006889

PATIENT
  Age: 63 Year
  Sex: Male

DRUGS (5)
  1. TAXOTERE [Suspect]
     Route: 042
  2. FENTANYL [Concomitant]
     Indication: PAIN
     Dates: start: 20090911, end: 20090928
  3. OXYCODONE HCL [Concomitant]
     Dates: start: 20090911, end: 20090921
  4. PREDNISONE TAB [Concomitant]
     Dates: start: 20090911, end: 20090921
  5. KYTRIL [Concomitant]
     Dates: start: 20090911, end: 20090911

REACTIONS (1)
  - NEUTROPENIC SEPSIS [None]
